FAERS Safety Report 25938149 (Version 1)
Quarter: 2025Q4

REPORT INFORMATION
  Report Type: Spontaneous
  Country: AU (occurrence: AU)
  Receive Date: 20251018
  Receipt Date: 20251018
  Transmission Date: 20260118
  Serious: Yes (Other)
  Sender: ALKEM
  Company Number: None

PATIENT
  Age: 73 Year
  Sex: Male

DRUGS (1)
  1. TICAGRELOR [Suspect]
     Active Substance: TICAGRELOR
     Indication: Product used for unknown indication
     Dosage: UNK
     Route: 065

REACTIONS (10)
  - Drug reaction with eosinophilia and systemic symptoms [Unknown]
  - Arthralgia [Unknown]
  - Eye pain [Unknown]
  - Headache [Unknown]
  - Musculoskeletal stiffness [Unknown]
  - Neck pain [Unknown]
  - Oedema [Unknown]
  - Renal failure [Unknown]
  - Hypotension [Unknown]
  - Hypersensitivity [Unknown]
